FAERS Safety Report 4602582-3 (Version None)
Quarter: 2005Q1

REPORT INFORMATION
  Report Type: 
  Country: None (occurrence: None)
  Receive Date: 20050307
  Receipt Date: 20041222
  Transmission Date: 20050727
  Serious: Yes (Other)
  Sender: FDA-Public Use
  Company Number: 2004108852

PATIENT
  Age: 46 Year
  Sex: Female

DRUGS (2)
  1. BEXTRA [Suspect]
     Indication: TENDONITIS
     Dates: start: 20040401, end: 20040422
  2. ANOVLAR      (ETHINYLESTRADIOL, NORETHISTERONE ACETATE) [Concomitant]

REACTIONS (2)
  - STEVENS-JOHNSON SYNDROME [None]
  - VASCULITIS [None]
